FAERS Safety Report 4405188-4 (Version None)
Quarter: 2004Q3

REPORT INFORMATION
  Report Type: 
  Country: None (occurrence: None)
  Receive Date: 20040722
  Receipt Date: 20040722
  Transmission Date: 20050211
  Serious: Yes (Hospitalization)
  Sender: FDA-Public Use
  Company Number: None

PATIENT
  Age: 52 Year
  Sex: Male
  Weight: 81.2846 kg

DRUGS (2)
  1. CISPLATIN [Suspect]
     Indication: CARCINOMA
     Dosage: 188 MG IV
     Route: 042
     Dates: start: 20040525
  2. CISPLATIN [Suspect]
     Indication: CARCINOMA
     Dosage: 188 MG IV
     Route: 042
     Dates: start: 20040623

REACTIONS (4)
  - CONSTIPATION [None]
  - DEHYDRATION [None]
  - NEPHROPATHY TOXIC [None]
  - URINARY RETENTION [None]
